FAERS Safety Report 7608166-7 (Version None)
Quarter: 2011Q3

REPORT INFORMATION
  Report Type: 
  Country: None (occurrence: None)
  Receive Date: 20110706
  Receipt Date: 20110623
  Transmission Date: 20111222
  Serious: Yes (Death)
  Sender: FDA-Public Use
  Company Number: ABR_00175_2011

PATIENT
  Age: 21 Year
  Sex: Male

DRUGS (2)
  1. ERYTHROMYCIN [Suspect]
     Indication: ACNE
     Dosage: (250 MG BID, 500 MG (250 MG, 2 IN 1 D), ORAL
     Route: 048
     Dates: start: 20110324
  2. DULOXETIME HYDROCHLORIDE [Suspect]
     Indication: DEPRESSION
     Dosage: ((60 MG) ORAL)
     Route: 048
     Dates: start: 20110402

REACTIONS (2)
  - FALL [None]
  - ARRHYTHMIA [None]
